FAERS Safety Report 4534238-X (Version None)
Quarter: 2004Q4

REPORT INFORMATION
  Report Type: 
  Country: None (occurrence: None)
  Receive Date: 20041222
  Receipt Date: 20040526
  Transmission Date: 20050328
  Serious: Yes (Other)
  Sender: FDA-Public Use
  Company Number: ZA-BRISTOL-MYERS SQUIBB COMPANY-12596318

PATIENT
  Age: 38 Year
  Sex: Female
  Weight: 92 kg

DRUGS (4)
  1. ZERIT [Suspect]
     Indication: HIV INFECTION
     Route: 048
     Dates: start: 20001020
  2. EFAVIRENZ [Suspect]
     Indication: HIV INFECTION
     Route: 048
     Dates: start: 20001020
  3. LAMIVUDINE [Suspect]
     Indication: HIV INFECTION
     Route: 048
     Dates: start: 20001020
  4. DEPO-PROVERA [Concomitant]
     Dates: start: 20040103

REACTIONS (2)
  - DIABETES MELLITUS [None]
  - LIPODYSTROPHY ACQUIRED [None]
